FAERS Safety Report 9353053 (Version 1)
Quarter: 2013Q2

REPORT INFORMATION
  Report Type: Spontaneous
  Country: JP (occurrence: JP)
  Receive Date: 20130618
  Receipt Date: 20130618
  Transmission Date: 20140414
  Serious: Yes (Other)
  Sender: FDA-Public Use
  Company Number: JP-MYLANLABS-2013S1012484

PATIENT
  Age: 5 Year
  Sex: Female

DRUGS (4)
  1. ACETYLSALICYLIC ACID [Suspect]
     Indication: KAWASAKI^S DISEASE
     Route: 048
  2. GAMMA-GLOBULIN [Suspect]
     Indication: KAWASAKI^S DISEASE
     Route: 041
  3. PREDNISOLONE [Suspect]
     Indication: KAWASAKI^S DISEASE
  4. FAMOTIDINE [Suspect]
     Indication: KAWASAKI^S DISEASE

REACTIONS (7)
  - Melaena [Unknown]
  - Anaemia [Unknown]
  - Pyrexia [None]
  - C-reactive protein increased [None]
  - Ascites [None]
  - Gastrointestinal haemorrhage [None]
  - Coronary artery dilatation [None]
